FAERS Safety Report 5612478-6 (Version None)
Quarter: 2008Q1

REPORT INFORMATION
  Report Type: 
  Country: None (occurrence: None)
  Receive Date: 20080129
  Receipt Date: 20080116
  Transmission Date: 20080703
  Serious: Yes (Other)
  Sender: FDA-Public Use
  Company Number: 2007337273

PATIENT
  Age: 83 Year
  Sex: Male

DRUGS (1)
  1. LISTERINE WHITENING QUICK DISSOLVING STRIPS (NO ACTIVE INGREDIENT) [Suspect]
     Indication: DENTAL CARE
     Dosage: UNSPECIFIED AMOUNT FOR 2 DAYS, ORAL
     Route: 048
     Dates: start: 20071210, end: 20071212

REACTIONS (5)
  - GINGIVAL PAIN [None]
  - GINGIVAL SWELLING [None]
  - LIP PAIN [None]
  - LIP SWELLING [None]
  - THERMAL BURN [None]
